FAERS Safety Report 13133421 (Version 1)
Quarter: 2017Q1

REPORT INFORMATION
  Report Type: Report from Study
  Country: US (occurrence: US)
  Receive Date: 20170120
  Receipt Date: 20170120
  Transmission Date: 20170428
  Serious: Yes (Death, Other)
  Sender: FDA-Public Use
  Company Number: US-GILEAD-2017-0254391

PATIENT
  Age: 75 Year
  Sex: Female

DRUGS (19)
  1. FUROSEMIDE. [Concomitant]
     Active Substance: FUROSEMIDE
  2. FLOLAN [Concomitant]
     Active Substance: EPOPROSTENOL SODIUM
  3. ELIQUIS [Concomitant]
     Active Substance: APIXABAN
  4. PROZAC [Concomitant]
     Active Substance: FLUOXETINE HYDROCHLORIDE
  5. ZANTAC [Concomitant]
     Active Substance: RANITIDINE HYDROCHLORIDE
  6. RANITIDINE. [Concomitant]
     Active Substance: RANITIDINE
  7. IRON [Concomitant]
     Active Substance: IRON
  8. CARVEDILOL. [Concomitant]
     Active Substance: CARVEDILOL
  9. AMBRISENTAN [Suspect]
     Active Substance: AMBRISENTAN
     Indication: PULMONARY HYPERTENSION
     Dosage: 10 MG, QD
     Route: 065
     Dates: start: 20071011, end: 20170105
  10. REVATIO [Concomitant]
     Active Substance: SILDENAFIL CITRATE
  11. WARFARIN [Concomitant]
     Active Substance: WARFARIN
  12. CITALOPRAM HYDROBROMIDE. [Concomitant]
     Active Substance: CITALOPRAM HYDROBROMIDE
  13. LORATADINE. [Concomitant]
     Active Substance: LORATADINE
  14. ALPRAZOLAM. [Concomitant]
     Active Substance: ALPRAZOLAM
  15. CALAN [Concomitant]
     Active Substance: VERAPAMIL HYDROCHLORIDE
  16. METOLAZONE. [Concomitant]
     Active Substance: METOLAZONE
  17. DILTIAZEM. [Concomitant]
     Active Substance: DILTIAZEM
  18. BUSPIRONE [Concomitant]
     Active Substance: BUSPIRONE HYDROCHLORIDE
  19. NIFEDIPINE. [Concomitant]
     Active Substance: NIFEDIPINE

REACTIONS (1)
  - Death [Fatal]

NARRATIVE: CASE EVENT DATE: 20170106
